FAERS Safety Report 21567560 (Version 2)
Quarter: 2022Q4

REPORT INFORMATION
  Report Type: Spontaneous
  Country: US (occurrence: US)
  Receive Date: 20221108
  Receipt Date: 20221129
  Transmission Date: 20230112
  Serious: No
  Sender: FDA-Public Use
  Company Number: US-LUPIN PHARMACEUTICALS INC.-2022-13142

PATIENT

DRUGS (1)
  1. ALBUTEROL SULFATE [Suspect]
     Active Substance: ALBUTEROL SULFATE
     Indication: Asthma
     Dosage: UNK UNK, BID, 2 PUFFS
     Route: 065
     Dates: start: 20221023

REACTIONS (4)
  - Circumstance or information capable of leading to device use error [Unknown]
  - Device use issue [Unknown]
  - Wrong technique in product usage process [Unknown]
  - No adverse event [Unknown]
